FAERS Safety Report 7296513-8 (Version None)
Quarter: 2011Q1

REPORT INFORMATION
  Report Type: 
  Country: None (occurrence: None)
  Receive Date: 20110216
  Receipt Date: 20110203
  Transmission Date: 20110831
  Serious: Yes (Hospitalization)
  Sender: FDA-Public Use
  Company Number: PHHY2011DE02147

PATIENT
  Sex: Female
  Weight: 50 kg

DRUGS (3)
  1. YASMIN [Suspect]
     Indication: CONTRACEPTION
     Dosage: 1 DF, QD
     Route: 048
     Dates: start: 20101104, end: 20101126
  2. EXTAVIA [Suspect]
     Indication: MULTIPLE SCLEROSIS
     Dosage: 0.2 ML (CORRESPONDING TO 50 MCG), QOD
     Route: 058
     Dates: start: 20101118, end: 20101124
  3. IBUPROFEN [Suspect]
     Dosage: 150 MG, UNK
     Route: 048
     Dates: start: 20101124, end: 20101124

REACTIONS (2)
  - HEPATIC FAILURE [None]
  - INFLUENZA LIKE ILLNESS [None]
